FAERS Safety Report 25043840 (Version 3)
Quarter: 2025Q2

REPORT INFORMATION
  Report Type: Spontaneous
  Country: IL (occurrence: IL)
  Receive Date: 20250306
  Receipt Date: 20250613
  Transmission Date: 20250716
  Serious: Yes (Hospitalization)
  Sender: BIOGEN
  Company Number: IL-BIOGEN-2025BI01302769

PATIENT
  Sex: Female

DRUGS (1)
  1. TOFERSEN [Suspect]
     Active Substance: TOFERSEN
     Indication: Amyotrophic lateral sclerosis
     Route: 050

REACTIONS (2)
  - Fall [Recovered/Resolved]
  - Cerebral haemorrhage [Not Recovered/Not Resolved]
